FAERS Safety Report 5062950-5 (Version None)
Quarter: 2006Q3

REPORT INFORMATION
  Report Type: 
  Country: None (occurrence: None)
  Receive Date: 20060724
  Receipt Date: 20060707
  Transmission Date: 20061208
  Serious: Yes (Death)
  Sender: FDA-Public Use
  Company Number: US-2006-018234

PATIENT
  Sex: Male

DRUGS (1)
  1. BETASERON [Suspect]
     Indication: RELAPSING-REMITTING MULTIPLE SCLEROSIS
     Dosage: 8 MIU, EVERY 2D, SUBCUTANEOUS
     Route: 058
     Dates: start: 20021030, end: 20060704

REACTIONS (4)
  - ALLERGY TO ARTHROPOD STING [None]
  - ARTHROPOD STING [None]
  - CARDIAC DISORDER [None]
  - RESPIRATORY ARREST [None]
